FAERS Safety Report 17381449 (Version 2)
Quarter: 2020Q1

REPORT INFORMATION
  Report Type: Spontaneous
  Country: BE (occurrence: BE)
  Receive Date: 20200206
  Receipt Date: 20200207
  Transmission Date: 20200409
  Serious: Yes (Hospitalization)
  Sender: FDA-Public Use
  Company Number: BE-PFIZER INC-2020043012

PATIENT
  Age: 34 Year
  Sex: Male

DRUGS (7)
  1. MELPHALAN. [Concomitant]
     Active Substance: MELPHALAN
     Dosage: UNK
  2. CYCLOSPORIN [Suspect]
     Active Substance: CYCLOSPORINE
     Indication: GRAFT VERSUS HOST DISEASE
     Dosage: UNK
     Route: 065
  3. CIDOFOVIR. [Concomitant]
     Active Substance: CIDOFOVIR
     Dosage: 10 MG/KG, 1X/DAY
     Route: 042
  4. MYCOPHENOLATE MOFETIL. [Suspect]
     Active Substance: MYCOPHENOLATE MOFETIL
     Indication: GRAFT VERSUS HOST DISEASE
     Dosage: UNK
     Route: 065
  5. FLUDARABINE [Concomitant]
     Active Substance: FLUDARABINE PHOSPHATE
     Dosage: UNK
  6. ANTITHYMOCYTE IMMUNOGLOBULIN [Concomitant]
     Active Substance: THYMOCYTE IMMUNE GLOBULIN NOS
     Dosage: UNK
  7. METHYLPREDNISOLONE. [Suspect]
     Active Substance: METHYLPREDNISOLONE
     Indication: GRAFT VERSUS HOST DISEASE
     Dosage: UNK
     Route: 065

REACTIONS (1)
  - Adenoviral haemorrhagic cystitis [Recovered/Resolved]
